FAERS Safety Report 6233428-8 (Version None)
Quarter: 2009Q2

REPORT INFORMATION
  Report Type: 
  Country: None (occurrence: None)
  Receive Date: 20090616
  Receipt Date: 20090616
  Transmission Date: 20091009
  Serious: Yes (Other)
  Sender: FDA-Public Use
  Company Number: None

PATIENT
  Age: 51 Year
  Sex: Female
  Weight: 86.1834 kg

DRUGS (2)
  1. CYMBALTA [Suspect]
     Indication: ARTHRITIS
     Dosage: 30MG 2 X DAILY PO
     Route: 048
     Dates: start: 20080601, end: 20090601
  2. CYMBALTA [Suspect]
     Indication: FIBROMYALGIA
     Dosage: 30MG 2 X DAILY PO
     Route: 048
     Dates: start: 20080601, end: 20090601

REACTIONS (5)
  - CONFUSIONAL STATE [None]
  - DIZZINESS [None]
  - NAUSEA [None]
  - PAIN [None]
  - PARAESTHESIA [None]
